FAERS Safety Report 6104724-X (Version None)
Quarter: 2009Q1

REPORT INFORMATION
  Report Type: 
  Country: None (occurrence: None)
  Receive Date: 20090302
  Receipt Date: 20090219
  Transmission Date: 20090719
  Serious: Yes (Hospitalization, Other)
  Sender: FDA-Public Use
  Company Number: 2009-00635

PATIENT
  Age: 61 Year
  Sex: Male
  Weight: 55.8 kg

DRUGS (5)
  1. VELCADE [Suspect]
     Indication: HEAD AND NECK CANCER
     Dosage: 1 MG/M2, IV BOLUS; 250 MG/M2,  INTRAVENOUS
     Route: 040
     Dates: end: 20090209
  2. VELCADE [Suspect]
     Indication: HEAD AND NECK CANCER
     Dosage: 1 MG/M2, IV BOLUS; 250 MG/M2,  INTRAVENOUS
     Route: 040
     Dates: start: 20081229, end: 20090212
  3. CETUXIMAB(CETUXIMAB) INJECTION [Suspect]
     Indication: HEAD AND NECK CANCER
     Dosage: 400 MG/M2,  INTRAVENOUS
     Route: 042
     Dates: start: 20081229
  4. FENTANYL-100 [Concomitant]
  5. OXYCODONE HCL [Concomitant]

REACTIONS (21)
  - APNOEA [None]
  - BACTERAEMIA [None]
  - BLOOD CULTURE POSITIVE [None]
  - CONFUSIONAL STATE [None]
  - DISORIENTATION [None]
  - DYSPNOEA [None]
  - HYPOPHOSPHATAEMIA [None]
  - HYPOVENTILATION [None]
  - HYPOXIA [None]
  - INCONTINENCE [None]
  - LYMPHOPENIA [None]
  - NEUTROPHIL COUNT DECREASED [None]
  - PAIN [None]
  - PALLOR [None]
  - PNEUMONIA ASPIRATION [None]
  - SOMNOLENCE [None]
  - STAPHYLOCOCCAL INFECTION [None]
  - TACHYCARDIA [None]
  - TROPONIN I INCREASED [None]
  - UNRESPONSIVE TO STIMULI [None]
  - VOMITING [None]
